FAERS Safety Report 18763090 (Version 1)
Quarter: 2021Q1

REPORT INFORMATION
  Report Type: Spontaneous
  Country: US (occurrence: US)
  Receive Date: 20210119
  Receipt Date: 20210119
  Transmission Date: 20210419
  Serious: No
  Sender: FDA-Public Use
  Company Number: None

PATIENT
  Age: 36 Year
  Sex: Female
  Weight: 104.33 kg

DRUGS (4)
  1. BENLYSTA [Suspect]
     Active Substance: BELIMUMAB
     Indication: RHEUMATOID ARTHRITIS
     Route: 058
     Dates: start: 202007
  2. BENLYSTA [Suspect]
     Active Substance: BELIMUMAB
     Indication: POLYMYOSITIS
     Route: 058
     Dates: start: 202007
  3. BENLYSTA [Suspect]
     Active Substance: BELIMUMAB
     Indication: RAYNAUD^S PHENOMENON
     Route: 058
     Dates: start: 202007
  4. BENLYSTA [Suspect]
     Active Substance: BELIMUMAB
     Indication: LUPUS-LIKE SYNDROME
     Route: 058
     Dates: start: 202007

REACTIONS (1)
  - COVID-19 [None]
